FAERS Safety Report 6695193-X (Version None)
Quarter: 2010Q2

REPORT INFORMATION
  Report Type: 
  Country: None (occurrence: None)
  Receive Date: 20100423
  Receipt Date: 20100412
  Transmission Date: 20101027
  Serious: Yes (Hospitalization, Other)
  Sender: FDA-Public Use
  Company Number: DK-WATSON-2010-01490

PATIENT
  Age: 51 Year
  Sex: Female

DRUGS (4)
  1. IBUPROFEN TABLETS [Suspect]
     Indication: ARTHRALGIA
     Dosage: UNK
     Dates: start: 20061001
  2. IBUPROFEN TABLETS [Suspect]
     Indication: HAEMORRHOID OPERATION
     Dosage: UNK
     Dates: start: 20050501
  3. IBUPROFEN TABLETS [Suspect]
     Indication: PYREXIA
     Dosage: UNK
     Dates: start: 20041101
  4. IBUPROFEN TABLETS [Suspect]
     Indication: CLUSTER HEADACHE
     Dosage: UNK
     Dates: start: 19940401

REACTIONS (3)
  - CEREBROVASCULAR DISORDER [None]
  - MENINGITIS ASEPTIC [None]
  - PYREXIA [None]
